FAERS Safety Report 19781484 (Version 2)
Quarter: 2021Q3

REPORT INFORMATION
  Report Type: Spontaneous
  Country: US (occurrence: US)
  Receive Date: 20210902
  Receipt Date: 20210924
  Transmission Date: 20211014
  Serious: No
  Sender: FDA-Public Use
  Company Number: US-MYLANLABS-2021M1053384

PATIENT
  Age: 52 Year
  Sex: Female
  Weight: 91 kg

DRUGS (1)
  1. GLATIRAMER ACETATE INJECTION [Suspect]
     Active Substance: GLATIRAMER ACETATE
     Indication: PRODUCT USED FOR UNKNOWN INDICATION
     Dosage: 20 MILLIGRAM, 3XW
     Route: 058

REACTIONS (6)
  - Dizziness [Unknown]
  - Pain [Unknown]
  - Nausea [Unknown]
  - Vertigo [Unknown]
  - Presyncope [Unknown]
  - Product substitution issue [Unknown]
